FAERS Safety Report 6325824-5 (Version None)
Quarter: 2009Q3

REPORT INFORMATION
  Report Type: 
  Country: None (occurrence: None)
  Receive Date: 20090818
  Receipt Date: 20090522
  Transmission Date: 20100115
  Serious: Yes (Other)
  Sender: FDA-Public Use
  Company Number: WAES 0905USA03568

PATIENT
  Sex: Female

DRUGS (2)
  1. JANUVIA [Suspect]
     Dosage: 100 MG/PO
     Route: 048
     Dates: start: 20090401
  2. LISINOPRIL [Concomitant]

REACTIONS (1)
  - STEVENS-JOHNSON SYNDROME [None]
